FAERS Safety Report 12393496 (Version 1)
Quarter: 2016Q2

REPORT INFORMATION
  Report Type: Spontaneous
  Country: US (occurrence: None)
  Receive Date: 20160520
  Receipt Date: 20160520
  Transmission Date: 20160815
  Serious: No
  Sender: FDA-Public Use
  Company Number: None

PATIENT
  Sex: Male

DRUGS (1)
  1. TOUJEO [Suspect]
     Active Substance: INSULIN GLARGINE

REACTIONS (9)
  - Hypersensitivity [None]
  - Blood glucose abnormal [None]
  - Eye infection [None]
  - Tinnitus [None]
  - Malaise [None]
  - Pharyngeal oedema [None]
  - Lip swelling [None]
  - Swollen tongue [None]
  - Middle ear effusion [None]
